FAERS Safety Report 8594168-3 (Version None)
Quarter: 2012Q3

REPORT INFORMATION
  Report Type: 
  Country: None (occurrence: None)
  Receive Date: 20120814
  Receipt Date: 20120806
  Transmission Date: 20120928
  Serious: Yes (Other)
  Sender: FDA-Public Use
  Company Number: CHPA2012US017751

PATIENT
  Sex: Female

DRUGS (2)
  1. FERROUS SULFATE TAB [Suspect]
     Indication: BLOOD IRON DECREASED
     Dosage: UNK, UNK
     Route: 048
     Dates: end: 20110101
  2. FERROUS SULFATE TAB [Suspect]
     Dosage: UNK, UNK
     Route: 048
     Dates: start: 20120701

REACTIONS (2)
  - MYOCARDIAL INFARCTION [None]
  - DISEASE RECURRENCE [None]
